FAERS Safety Report 5873507-8 (Version None)
Quarter: 2008Q3

REPORT INFORMATION
  Report Type: 
  Country: None (occurrence: None)
  Receive Date: 20080908
  Receipt Date: 20080827
  Transmission Date: 20090109
  Serious: Yes (Hospitalization)
  Sender: FDA-Public Use
  Company Number: US-BAUSCH-2008BL003804

PATIENT
  Age: 25 Year
  Sex: Female

DRUGS (2)
  1. CIPROFLOXACIN [Suspect]
     Indication: URINARY TRACT INFECTION
     Route: 048
  2. ETHINYL ESTADIOL/NORGESTIMATE [Concomitant]
     Indication: CONTRACEPTION

REACTIONS (1)
  - CONVULSION [None]
